FAERS Safety Report 8811482 (Version 1)
Quarter: 2012Q4

REPORT INFORMATION
  Report Type: 
  Country: FR (occurrence: FR)
  Receive Date: 20120921
  Receipt Date: 20120921
  Transmission Date: 20130627
  Serious: Yes (Hospitalization)
  Sender: FDA-Public Use
  Company Number: FR-JNJFOC-20120909247

PATIENT
  Age: 66 Year
  Sex: Male

DRUGS (8)
  1. XARELTO [Suspect]
     Indication: PROPHYLAXIS
     Route: 048
     Dates: start: 20120629, end: 20120710
  2. LINCOMYCIN [Suspect]
     Indication: PRODUCT USED FOR UNKNOWN INDICATION
     Route: 048
     Dates: start: 201207
  3. COTAREG [Suspect]
     Indication: HYPERTENSION
     Route: 048
     Dates: end: 20120710
  4. FINASTERIDE [Concomitant]
     Route: 048
  5. SPECIAFOLDINE [Concomitant]
     Route: 048
  6. TOPALGIC LP [Concomitant]
     Indication: PAIN
     Route: 048
  7. RIFADINE [Concomitant]
     Route: 048
     Dates: start: 201207
  8. DAFALGAN [Concomitant]
     Indication: PAIN
     Route: 048

REACTIONS (4)
  - Hyponatraemia [Recovered/Resolved]
  - Decreased appetite [Recovered/Resolved]
  - Asthenia [Recovered/Resolved]
  - Hypokalaemia [Recovered/Resolved]
